FAERS Safety Report 15191340 (Version 1)
Quarter: 2018Q3

REPORT INFORMATION
  Report Type: Report from Study
  Country: US (occurrence: US)
  Receive Date: 20180724
  Receipt Date: 20180724
  Transmission Date: 20181010
  Serious: No
  Sender: FDA-Public Use
  Company Number: US-AMGEN-USASL2018021812

PATIENT
  Sex: Male

DRUGS (1)
  1. KYPROLIS [Suspect]
     Active Substance: CARFILZOMIB
     Indication: PLASMA CELL MYELOMA
     Dosage: UNK, ONCE A WEEK FOR 3 WEEKS ON AND 1 WEEK OFF
     Route: 065
     Dates: end: 20180212

REACTIONS (3)
  - Therapy non-responder [Unknown]
  - Off label use [Unknown]
  - Laboratory test abnormal [Unknown]
